FAERS Safety Report 6026674-X (Version None)
Quarter: 2008Q4

REPORT INFORMATION
  Report Type: 
  Country: None (occurrence: None)
  Receive Date: 20081231
  Receipt Date: 20081218
  Transmission Date: 20090506
  Serious: Yes (Hospitalization)
  Sender: FDA-Public Use
  Company Number: 8040100

PATIENT
  Age: 24 Year
  Sex: Female
  Weight: 72.3 kg

DRUGS (3)
  1. CIMZIA [Suspect]
     Indication: CROHN'S DISEASE
     Dosage: 400 MG SC
     Route: 058
     Dates: start: 20081119
  2. PREDNISONE [Concomitant]
  3. PENTASA [Concomitant]

REACTIONS (5)
  - ABDOMINAL PAIN [None]
  - BACK PAIN [None]
  - INJECTION SITE PAIN [None]
  - MUSCULOSKELETAL PAIN [None]
  - PAIN [None]
